FAERS Safety Report 16088386 (Version 1)
Quarter: 2019Q1

REPORT INFORMATION
  Report Type: Spontaneous
  Country: AR (occurrence: AR)
  Receive Date: 20190319
  Receipt Date: 20190319
  Transmission Date: 20190418
  Serious: Yes (Other)
  Sender: FDA-Public Use
  Company Number: AR-AMGEN-ARGSP2019042377

PATIENT
  Age: 54 Year
  Sex: Female

DRUGS (1)
  1. ENBREL [Suspect]
     Active Substance: ETANERCEPT
     Indication: AXIAL SPONDYLOARTHRITIS
     Dosage: 50 MG, WEEKLY
     Route: 065
     Dates: start: 20180124

REACTIONS (4)
  - Decreased immune responsiveness [Unknown]
  - Drug intolerance [Unknown]
  - Pneumonia [Unknown]
  - Contusion [Unknown]
